FAERS Safety Report 14131981 (Version 1)
Quarter: 2017Q4

REPORT INFORMATION
  Report Type: Spontaneous
  Country: ZA (occurrence: ZA)
  Receive Date: 20171026
  Receipt Date: 20171026
  Transmission Date: 20180321
  Serious: Yes (Hospitalization)
  Sender: FDA-Public Use
  Company Number: ZA-MYLANLABS-2017M1066833

PATIENT
  Age: 58 Year
  Sex: Male

DRUGS (13)
  1. CLOPIWIN [Suspect]
     Active Substance: CLOPIDOGREL BISULFATE
     Indication: PRODUCT USED FOR UNKNOWN INDICATION
     Dosage: 75 MG, UNK
     Route: 048
  2. CALCIFEROL [Suspect]
     Active Substance: ERGOCALCIFEROL
     Indication: PRODUCT USED FOR UNKNOWN INDICATION
     Dosage: 50000 IU, UNK
     Route: 048
  3. PURICOS [Suspect]
     Active Substance: ALLOPURINOL
     Indication: GOUT
     Dosage: 30 MG, UNK
     Route: 048
  4. FUROSEMIDE MYLAN [Suspect]
     Active Substance: FUROSEMIDE
     Indication: HYPERTENSION
     Dosage: 40 MG, UNK
     Route: 048
  5. NOVOMIX [Suspect]
     Active Substance: INSULIN ASPART
     Indication: DIABETES MELLITUS
     Dosage: UNK
     Route: 030
  6. ELANTAN [Suspect]
     Active Substance: ISOSORBIDE MONONITRATE
     Indication: PRODUCT USED FOR UNKNOWN INDICATION
     Dosage: 20 MG, UNK
     Route: 048
  7. ECOTRIN [Suspect]
     Active Substance: ASPIRIN
     Indication: ANTIVIRAL PROPHYLAXIS
     Dosage: 81 MG, UNK
     Route: 048
  8. ALZAM [Suspect]
     Active Substance: ALPRAZOLAM
     Indication: STRESS
     Dosage: 1 MG, UNK
     Route: 048
  9. PHOSPHOSORB [Suspect]
     Active Substance: CALCIUM ACETATE
     Indication: PRODUCT USED FOR UNKNOWN INDICATION
     Dosage: 660 MG, UNK
     Route: 048
  10. ADCO-SIMVASTATIN [Suspect]
     Active Substance: SIMVASTATIN
     Indication: BLOOD CHOLESTEROL ABNORMAL
     Dosage: 20 MG, UNK
     Route: 048
  11. ONE ALPHA [Suspect]
     Active Substance: ALFACALCIDOL
     Indication: VITAMIN D DEFICIENCY
     Dosage: 1 ?G, UNK
     Route: 048
  12. EZETROL [Suspect]
     Active Substance: EZETIMIBE
     Indication: BLOOD CHOLESTEROL ABNORMAL
     Dosage: 10 MG, UNK
     Route: 048
  13. CARLOC [Suspect]
     Active Substance: CARVEDILOL
     Indication: HYPERTENSION
     Dosage: 12.5 MG, UNK
     Route: 048

REACTIONS (1)
  - Lung disorder [Unknown]
